FAERS Safety Report 7336586-7 (Version None)
Quarter: 2011Q1

REPORT INFORMATION
  Report Type: 
  Country: None (occurrence: None)
  Receive Date: 20110307
  Receipt Date: 20110302
  Transmission Date: 20110831
  Serious: Yes (Death, Hospitalization)
  Sender: FDA-Public Use
  Company Number: FR-MERCK-1103FRA00009

PATIENT
  Age: 66 Year
  Sex: Female

DRUGS (12)
  1. ISENTRESS [Suspect]
     Indication: HIV INFECTION
     Route: 048
     Dates: start: 20100302
  2. MARAVIROC [Concomitant]
     Route: 048
  3. TENOFOVIR [Concomitant]
     Indication: HIV INFECTION
     Route: 048
  4. LAMIVUDINE [Concomitant]
     Route: 048
  5. FUROSEMIDE [Concomitant]
     Route: 048
     Dates: start: 20010101
  6. INSULIN [Concomitant]
     Route: 058
  7. MYCOPHENOLATE MOFETIL [Concomitant]
     Route: 065
     Dates: start: 20080101
  8. PREDNISONE [Concomitant]
     Route: 048
  9. RAMIPRIL [Concomitant]
     Route: 048
     Dates: start: 20010101
  10. LEVOTHYROXINE SODIUM [Concomitant]
     Route: 048
     Dates: start: 20010101
  11. ROSUVASTATIN CALCIUM [Concomitant]
     Route: 048
     Dates: start: 20081001
  12. TACROLIMUS [Concomitant]
     Route: 048
     Dates: start: 20080101

REACTIONS (2)
  - MALAISE [None]
  - CARDIO-RESPIRATORY ARREST [None]
